FAERS Safety Report 10058034 (Version 1)
Quarter: 2014Q2

REPORT INFORMATION
  Report Type: Spontaneous
  Country: US (occurrence: None)
  Receive Date: 20140403
  Receipt Date: 20140403
  Transmission Date: 20141212
  Serious: Yes (Hospitalization, Other)
  Sender: FDA-Public Use
  Company Number: None

PATIENT
  Age: 21 Year
  Sex: Female
  Weight: 81.65 kg

DRUGS (1)
  1. QSYMIA [Suspect]
     Indication: BODY MASS INDEX
     Route: 048
     Dates: start: 20140317, end: 20140326

REACTIONS (3)
  - Glaucoma [None]
  - Discomfort [None]
  - Ocular discomfort [None]
